FAERS Safety Report 5085873-4 (Version None)
Quarter: 2006Q3

REPORT INFORMATION
  Report Type: 
  Country: None (occurrence: None)
  Receive Date: 20060817
  Receipt Date: 20060807
  Transmission Date: 20061208
  Serious: Yes (Life-Threatening, Other)
  Sender: FDA-Public Use
  Company Number: HQWYE216509AUG06

PATIENT
  Sex: Female

DRUGS (1)
  1. EFFEXOR XR [Suspect]
     Indication: MAJOR DEPRESSION
     Dosage: SEE IMAGE, ORAL
     Route: 048

REACTIONS (3)
  - DRUG WITHDRAWAL SYNDROME [None]
  - NERVOUS SYSTEM DISORDER [None]
  - SUICIDAL IDEATION [None]
